FAERS Safety Report 13996269 (Version 2)
Quarter: 2017Q4

REPORT INFORMATION
  Report Type: Spontaneous
  Country: US (occurrence: US)
  Receive Date: 20170921
  Receipt Date: 20171025
  Transmission Date: 20180321
  Serious: Yes (Death, Other)
  Sender: FDA-Public Use
  Company Number: US-AMAG PHARMACEUTICALS, INC.-AMAG201702824

PATIENT
  Age: 0 Year
  Sex: Male

DRUGS (1)
  1. MAKENA [Suspect]
     Active Substance: HYDROXYPROGESTERONE CAPROATE
     Indication: FOETAL EXPOSURE DURING PREGNANCY
     Dosage: 250 MG/ML, WEEKLY
     Route: 064
     Dates: start: 20170621, end: 20170904

REACTIONS (2)
  - Subdural haematoma [Unknown]
  - Premature baby [Fatal]

NARRATIVE: CASE EVENT DATE: 20170809
